FAERS Safety Report 9144540 (Version 4)
Quarter: 2013Q2

REPORT INFORMATION
  Report Type: Spontaneous
  Country: US (occurrence: US)
  Receive Date: 20130306
  Receipt Date: 20130410
  Transmission Date: 20140414
  Serious: Yes (Other)
  Sender: FDA-Public Use
  Company Number: CHPA2013US003828

PATIENT
  Age: 83 Year
  Sex: Female

DRUGS (1)
  1. VOLTAREN GEL [Suspect]
     Indication: ARTHRALGIA
     Dosage: UNK, BID
     Route: 061
     Dates: start: 201104

REACTIONS (4)
  - Arthralgia [Recovered/Resolved]
  - Therapeutic response unexpected [Unknown]
  - Wrong technique in drug usage process [Unknown]
  - Drug administered at inappropriate site [Unknown]
